FAERS Safety Report 9366708 (Version 1)
Quarter: 2013Q2

REPORT INFORMATION
  Report Type: Spontaneous
  Country: GB (occurrence: None)
  Receive Date: 20130620
  Receipt Date: 20130620
  Transmission Date: 20140414
  Serious: Yes (Life-Threatening, Hospitalization, Other)
  Sender: FDA-Public Use
  Company Number: AUR-APL-2013-04884

PATIENT
  Age: 76 Year
  Sex: Male

DRUGS (8)
  1. LISINOPRIL (LISINOPRIL) [Suspect]
     Indication: PROTEINURIA
     Dosage: (10 MG, 1 IN 1 D)
     Route: 048
     Dates: start: 20120528, end: 20130520
  2. METFORMIN (METFORMIN) [Suspect]
     Indication: TYPE 2 DIABETES MELLITUS
     Dosage: (3 GM, 3 IN 1 D)
     Route: 048
     Dates: start: 20110803, end: 20130520
  3. ASPIRIN (ACETYLSALICYLIC ACID) [Concomitant]
  4. BHIMONIDINE (BRIMONIDINE) [Concomitant]
  5. GLICLAZIDE (GLICLAZIDE) [Concomitant]
  6. LATANOPROST (LATANOPROST) (NONE) [Concomitant]
  7. PIOGLITAZONE (PIOGLITAZONE) [Concomitant]
  8. SIMVASTATIN (SIMVASTATIN) [Concomitant]

REACTIONS (3)
  - Lactic acidosis [None]
  - Renal failure acute [None]
  - Continuous haemodiafiltration [None]
